FAERS Safety Report 21746008 (Version 1)
Quarter: 2022Q4

REPORT INFORMATION
  Report Type: Report from Study
  Country: US (occurrence: US)
  Receive Date: 20221219
  Receipt Date: 20221219
  Transmission Date: 20230113
  Serious: No
  Sender: FDA-Public Use
  Company Number: US-ABBVIE-4239969

PATIENT
  Sex: Female

DRUGS (1)
  1. HUMIRA [Suspect]
     Active Substance: ADALIMUMAB
     Indication: Crohn^s disease
     Dosage: FORM STRENGTH: 40 MILLIGRAM/CITRATE FREE/EVENT ONSET DATE FOR COLD SYMPTOMS AND SICK SHOULD BE AT...
     Route: 058
     Dates: start: 20220715

REACTIONS (2)
  - Nasopharyngitis [Unknown]
  - Illness [Unknown]
